FAERS Safety Report 9562088 (Version 1)
Quarter: 2013Q3

REPORT INFORMATION
  Report Type: Report from Study
  Country: US (occurrence: US)
  Receive Date: 20130927
  Receipt Date: 20130927
  Transmission Date: 20140515
  Serious: Yes (Hospitalization)
  Sender: FDA-Public Use
  Company Number: US-ABBVIE-13P-163-1149855-00

PATIENT
  Age: 21 Year
  Sex: Female

DRUGS (3)
  1. HUMIRA [Suspect]
     Indication: CROHN^S DISEASE
     Dates: start: 201209
  2. HUMIRA [Suspect]
     Dates: end: 201302
  3. HUMIRA [Suspect]
     Dates: start: 201302

REACTIONS (6)
  - VIIth nerve paralysis [Recovered/Resolved]
  - Crohn^s disease [Unknown]
  - Influenza [Unknown]
  - Crohn^s disease [Unknown]
  - Crohn^s disease [Not Recovered/Not Resolved]
  - Headache [Unknown]
